FAERS Safety Report 17167763 (Version 1)
Quarter: 2019Q4

REPORT INFORMATION
  Report Type: Spontaneous
  Country: GB (occurrence: GB)
  Receive Date: 20191218
  Receipt Date: 20191218
  Transmission Date: 20200122
  Serious: Yes (Other)
  Sender: FDA-Public Use
  Company Number: GB-SUN PHARMACEUTICAL INDUSTRIES LTD-2019RR-230927

PATIENT
  Age: 17 Year
  Sex: Male
  Weight: 66 kg

DRUGS (1)
  1. ISOTRETINOIN. [Suspect]
     Active Substance: ISOTRETINOIN
     Indication: ACNE CYSTIC
     Dosage: 10MGS ONCE DAILY 4 WEEKS.  20MGS 12 WEEKS. ()
     Route: 065
     Dates: start: 20190604, end: 20190916

REACTIONS (3)
  - Mood altered [Not Recovered/Not Resolved]
  - Suicidal ideation [Unknown]
  - Intentional self-injury [Unknown]

NARRATIVE: CASE EVENT DATE: 20190913
